FAERS Safety Report 10054926 (Version 2)
Quarter: 2014Q2

REPORT INFORMATION
  Report Type: Report from Study
  Country: DE (occurrence: DE)
  Receive Date: 20140402
  Receipt Date: 20140523
  Transmission Date: 20141212
  Serious: Yes (Other)
  Sender: FDA-Public Use
  Company Number: PHHO2014DE004677

PATIENT
  Sex: 0

DRUGS (1)
  1. CGS 20267 [Suspect]
     Indication: BREAST CANCER
     Dosage: 2.5 MG, PER DAY
     Route: 048
     Dates: start: 20090818

REACTIONS (2)
  - Pancreatic carcinoma [Unknown]
  - Second primary malignancy [Unknown]
